FAERS Safety Report 9352951 (Version 1)
Quarter: 2013Q2

REPORT INFORMATION
  Report Type: Spontaneous
  Country: US (occurrence: None)
  Receive Date: 20130614
  Receipt Date: 20130614
  Transmission Date: 20140414
  Serious: No
  Sender: FDA-Public Use
  Company Number: None

PATIENT
  Age: 80 Year
  Sex: Female
  Weight: 72.58 kg

DRUGS (11)
  1. ETODOLAC [Suspect]
     Indication: ARTHRITIS
     Route: 048
     Dates: start: 20130509, end: 20130525
  2. ETODOLAC [Suspect]
     Indication: HYPERTENSION
     Route: 048
     Dates: start: 20130509, end: 20130525
  3. BISOPROLOL [Suspect]
  4. MELOXICAM [Concomitant]
  5. LOSARTAN/HCTZ 100/25 [Concomitant]
  6. PREMARIX [Concomitant]
  7. LEVOTHYROXIN [Concomitant]
  8. TRAMADOL [Concomitant]
  9. IRON 27MG [Concomitant]
  10. VIT C 500 MG [Concomitant]
  11. TYLENOL PM [Concomitant]

REACTIONS (6)
  - Local swelling [None]
  - Local swelling [None]
  - Erythema [None]
  - Pain in extremity [None]
  - Pruritus [None]
  - Pyrexia [None]
